FAERS Safety Report 7399132-8 (Version None)
Quarter: 2011Q1

REPORT INFORMATION
  Report Type: 
  Country: None (occurrence: None)
  Receive Date: 20110301
  Receipt Date: 20100312
  Transmission Date: 20110831
  Serious: Yes (Other)
  Sender: FDA-Public Use
  Company Number: RB-04560-2010

PATIENT
  Sex: Male

DRUGS (1)
  1. SUBOXONE [Suspect]
     Indication: DRUG DEPENDENCE
     Dosage: TOOK ONE TO TWO 8 MG TABLETS ORAL
     Route: 048
     Dates: start: 20100312, end: 20100312

REACTIONS (3)
  - ACCIDENTAL EXPOSURE [None]
  - SOMNOLENCE [None]
  - VOMITING [None]
